FAERS Safety Report 4592066-3 (Version None)
Quarter: 2005Q1

REPORT INFORMATION
  Report Type: 
  Country: None (occurrence: None)
  Receive Date: 20050125
  Receipt Date: 20040903
  Transmission Date: 20050727
  Serious: No
  Sender: FDA-Public Use
  Company Number: USA040463925

PATIENT
  Age: 77 Year
  Sex: Female
  Weight: 82 kg

DRUGS (11)
  1. FORTEO [Suspect]
     Indication: OSTEOPOROSIS
     Dosage: 20 UG/1 DAY
     Dates: start: 20040313
  2. VITAMIN D [Concomitant]
  3. TIAZAC (DILTIAZAM HYDROCHLORIDE) [Concomitant]
  4. GLUCOVANCE [Concomitant]
  5. NEURONTIN [Concomitant]
  6. PAXIL [Concomitant]
  7. ASPIRIN [Concomitant]
  8. AMBIEN [Concomitant]
  9. LORAZEPAM [Concomitant]
  10. CALCIUM GLUCONATE [Concomitant]
  11. DARVOCET-N 100 [Concomitant]

REACTIONS (6)
  - BLOOD PRESSURE INCREASED [None]
  - INJECTION SITE ERYTHEMA [None]
  - INJECTION SITE HAEMORRHAGE [None]
  - MEDICATION ERROR [None]
  - OVERDOSE [None]
  - STOMACH DISCOMFORT [None]
